FAERS Safety Report 9130478 (Version 5)
Quarter: 2013Q2

REPORT INFORMATION
  Report Type: Spontaneous
  Country: BR (occurrence: BR)
  Receive Date: 20130301
  Receipt Date: 20130628
  Transmission Date: 20140414
  Serious: Yes (Other)
  Sender: FDA-Public Use
  Company Number: BR-BIOGENIDEC-2012BI037055

PATIENT
  Age: 33 Year
  Sex: Female
  Weight: 57 kg

DRUGS (5)
  1. AVONEX [Suspect]
     Indication: MULTIPLE SCLEROSIS
     Route: 030
     Dates: start: 200710, end: 201205
  2. FOLIC ACID [Concomitant]
     Indication: PREGNANCY
     Route: 048
     Dates: start: 201301
  3. VITAMIN D [Concomitant]
     Indication: PREGNANCY
     Route: 048
     Dates: start: 201301
  4. ANTIDEPRESANTS [Concomitant]
  5. DAMATER [Concomitant]
     Indication: PREGNANCY
     Route: 048
     Dates: start: 201301

REACTIONS (4)
  - Prolonged labour [Unknown]
  - Swelling [Unknown]
  - Postpartum depression [Unknown]
  - Fatigue [Unknown]
